FAERS Safety Report 11453281 (Version 5)
Quarter: 2015Q4

REPORT INFORMATION
  Report Type: Spontaneous
  Country: US (occurrence: US)
  Receive Date: 20150903
  Receipt Date: 20151124
  Transmission Date: 20160304
  Serious: No
  Sender: FDA-Public Use
  Company Number: US-PFIZER INC-2015290312

PATIENT
  Age: 70 Year
  Sex: Female
  Weight: 64 kg

DRUGS (4)
  1. TYLENOL [Concomitant]
     Active Substance: ACETAMINOPHEN
     Dosage: 500 MG, UNK
  2. ADVIL [Suspect]
     Active Substance: IBUPROFEN
     Indication: TENDONITIS
     Dosage: 200 MG, EVERY 4-6 HOURS
     Route: 048
     Dates: start: 20150826, end: 20150827
  3. ADVIL [Suspect]
     Active Substance: IBUPROFEN
     Dosage: UNK
  4. ALKA-SELTZER GOLD [Concomitant]
     Active Substance: ANHYDROUS CITRIC ACID\POTASSIUM BICARBONATE\SODIUM BICARBONATE

REACTIONS (5)
  - Abdominal pain upper [Recovered/Resolved]
  - Reaction to drug excipients [Unknown]
  - Abdominal discomfort [Unknown]
  - Product colour issue [Recovered/Resolved]
  - Dyspepsia [Recovered/Resolved]

NARRATIVE: CASE EVENT DATE: 201508
